FAERS Safety Report 21957732 (Version 2)
Quarter: 2023Q1

REPORT INFORMATION
  Report Type: Spontaneous
  Country: US (occurrence: US)
  Receive Date: 20230206
  Receipt Date: 20230207
  Transmission Date: 20230418
  Serious: Yes (Other)
  Sender: FDA-Public Use
  Company Number: US-PFIZER INC-202300051620

PATIENT
  Sex: Female

DRUGS (3)
  1. MENEST [Suspect]
     Active Substance: ESTROGENS, ESTERIFIED
     Dosage: STEPPED DOWN TO TAKING 2 OF THE SMALLER DOSES 2 TIMES A DAY
  2. MENEST [Suspect]
     Active Substance: ESTROGENS, ESTERIFIED
     Dosage: STARTED TAKING THE 0.625 ONE TIME A DAY
  3. MENEST [Suspect]
     Active Substance: ESTROGENS, ESTERIFIED
     Dosage: 2 A DAY OF 1.25

REACTIONS (4)
  - Pancreatitis [Unknown]
  - Systemic lupus erythematosus [Unknown]
  - Intentional product misuse [Unknown]
  - Product supply issue [Unknown]
